FAERS Safety Report 4743829-2 (Version None)
Quarter: 2005Q3

REPORT INFORMATION
  Report Type: 
  Country: None (occurrence: None)
  Receive Date: 20050812
  Receipt Date: 20050808
  Transmission Date: 20060218
  Serious: Yes (Death, Hospitalization)
  Sender: FDA-Public Use
  Company Number: US-BRISTOL-MYERS SQUIBB COMPANY-13066279

PATIENT
  Age: 67 Year
  Sex: Male
  Weight: 68 kg

DRUGS (3)
  1. CETUXIMAB [Suspect]
     Indication: NON-SMALL CELL LUNG CANCER
     Dosage: ADMIN OVER 1 HOUR/DOSE HELD (NO DATE)/470 MG TOTAL DOSE ADMINISTERED THIS COURSE.
     Route: 042
     Dates: start: 20050720, end: 20050720
  2. CARBOPLATIN [Suspect]
     Indication: NON-SMALL CELL LUNG CANCER
     Dosage: AUC=6 ADMINISTERED OVER 30 MIN. TOTAL DOSE ADMINISTERED THIS COURSE = 590 MG.
     Route: 042
     Dates: start: 20050706, end: 20050706
  3. PACLITAXEL [Suspect]
     Indication: NON-SMALL CELL LUNG CANCER
     Dosage: ADMINSTERED OVER 3 HOURS.  TOTAL DOSE ADMINISTERED THIS COURSE = 423 MG.
     Route: 042
     Dates: start: 20050706, end: 20050706

REACTIONS (3)
  - HAEMOGLOBIN DECREASED [None]
  - PNEUMONITIS [None]
  - SEPSIS [None]
